FAERS Safety Report 24630553 (Version 1)
Quarter: 2024Q4

REPORT INFORMATION
  Report Type: Spontaneous
  Country: IE (occurrence: IE)
  Receive Date: 20241118
  Receipt Date: 20241118
  Transmission Date: 20250115
  Serious: Yes (Other)
  Sender: AMGEN
  Company Number: IE-AMGEN-IRLSP2024222362

PATIENT
  Age: 26 Year
  Sex: Female

DRUGS (3)
  1. ADALIMUMAB [Suspect]
     Active Substance: ADALIMUMAB
     Indication: Colitis ulcerative
     Dosage: 80 MILLIGRAM
     Route: 065
  2. ADALIMUMAB [Suspect]
     Active Substance: ADALIMUMAB
     Dosage: 40 MILLIGRAM, Q2WK
     Route: 065
  3. PENTASA [Concomitant]
     Active Substance: MESALAMINE
     Dosage: 2 GRAM, BID

REACTIONS (9)
  - Organising pneumonia [Recovered/Resolved]
  - Mycobacterial infection [Unknown]
  - Microcytic anaemia [Recovered/Resolved]
  - Transferrin saturation decreased [Recovered/Resolved]
  - Serum ferritin increased [Recovered/Resolved]
  - White blood cell count increased [Recovered/Resolved]
  - Platelet count increased [Recovered/Resolved]
  - Blood albumin decreased [Recovered/Resolved]
  - Off label use [Unknown]
